FAERS Safety Report 6077537-5 (Version None)
Quarter: 2009Q1

REPORT INFORMATION
  Report Type: 
  Country: None (occurrence: None)
  Receive Date: 20090211
  Receipt Date: 20090130
  Transmission Date: 20090719
  Serious: Yes (Life-Threatening)
  Sender: FDA-Public Use
  Company Number: 100#03#2009-00369

PATIENT
  Age: 52 Year
  Sex: Female

DRUGS (7)
  1. ONDANSETRON HCL [Suspect]
     Indication: ANTIEMETIC SUPPORTIVE CARE
     Dosage: 4 MG INTRAVENOUS
     Route: 042
     Dates: start: 20081231, end: 20081231
  2. ATRACURIUM BESYLATE [Suspect]
     Indication: MUSCLE RELAXANT THERAPY
     Dosage: 10 MG INTRAVENOUS
     Route: 042
     Dates: start: 20081231, end: 20081231
  3. DEXAMETHASONE TAB [Suspect]
     Indication: ANTIEMETIC SUPPORTIVE CARE
     Dosage: 8 MG INTRAVENOUS
     Route: 042
     Dates: start: 20081231, end: 20081231
  4. DYLOJECT (DICLOFENAC) [Suspect]
     Indication: ANALGESIA
     Dosage: 75 MG INTRAVENOUS
     Route: 042
     Dates: start: 20081231, end: 20081231
  5. FENTANYL-100 [Suspect]
     Indication: ANALGESIA
     Dosage: 100 ?G INTRAVENOUS
     Route: 042
     Dates: start: 20081231, end: 20081231
  6. MORPHINE [Suspect]
     Indication: ANALGESIA
     Dosage: 4 MG INTRAVENOUS
     Route: 042
     Dates: start: 20081231, end: 20081231
  7. PROPOFOL [Suspect]
     Indication: ANAESTHESIA
     Dosage: 200 MG INTRAVENOUS
     Route: 042
     Dates: start: 20081231, end: 20081231

REACTIONS (3)
  - ANAPHYLACTIC SHOCK [None]
  - BRADYCARDIA [None]
  - ELECTROMECHANICAL DISSOCIATION [None]
